FAERS Safety Report 7913766-0 (Version None)
Quarter: 2011Q4

REPORT INFORMATION
  Report Type: 
  Country: None (occurrence: None)
  Receive Date: 20111115
  Receipt Date: 20111108
  Transmission Date: 20120403
  Serious: Yes (Death, Other)
  Sender: FDA-Public Use
  Company Number: SE-BRISTOL-MYERS SQUIBB COMPANY-15833965

PATIENT
  Age: 59 Year
  Sex: Male

DRUGS (14)
  1. CISPLATIN [Suspect]
     Indication: NON-SMALL CELL LUNG CANCER
     Dosage: RECENT INF 13JUN2007
     Route: 042
     Dates: start: 20070523
  2. DIAZEPAM [Concomitant]
     Route: 048
  3. COMBIVENT [Concomitant]
     Route: 055
  4. MEROPENEM [Concomitant]
     Route: 042
  5. KABIVEN [Concomitant]
  6. FRAGMIN [Concomitant]
     Route: 058
  7. TAXOTERE [Suspect]
     Indication: NON-SMALL CELL LUNG CANCER
     Dosage: RECENT INF 13JUN2007.
     Route: 042
     Dates: start: 20070523
  8. ZESTRIL [Concomitant]
     Route: 048
  9. ZINACEF [Concomitant]
     Route: 042
  10. CETUXIMAB [Suspect]
     Indication: NON-SMALL CELL LUNG CANCER
     Dosage: RECENT INF 20AUG2007
     Route: 042
     Dates: start: 20070626
  11. BETAPRED [Concomitant]
     Route: 048
  12. DEXTROSE [Concomitant]
  13. PROCHLORPERAZINE [Concomitant]
     Route: 048
  14. SODIUM CHLORIDE [Concomitant]

REACTIONS (2)
  - ACUTE RESPIRATORY DISTRESS SYNDROME [None]
  - RESPIRATORY FAILURE [None]
